FAERS Safety Report 8008977-2 (Version None)
Quarter: 2011Q4

REPORT INFORMATION
  Report Type: 
  Country: None (occurrence: None)
  Receive Date: 20111227
  Receipt Date: 20111221
  Transmission Date: 20120403
  Serious: No
  Sender: FDA-Public Use
  Company Number: US-PFIZER INC-2011310329

PATIENT
  Sex: Male
  Weight: 108.84 kg

DRUGS (3)
  1. LIPITOR [Suspect]
     Indication: BLOOD CHOLESTEROL
     Dosage: UNK
     Dates: start: 20060101, end: 20111101
  2. NIASPAN [Suspect]
     Dosage: 1000 MG, 1X/DAY
     Dates: start: 20101101, end: 20111101
  3. NIASPAN [Suspect]
     Indication: HIGH DENSITY LIPOPROTEIN INCREASED
     Dosage: 500 MG, 1X/DAY
     Dates: start: 20081201, end: 20101101

REACTIONS (2)
  - MYALGIA [None]
  - MUSCLE TWITCHING [None]
